FAERS Safety Report 9318372 (Version 1)
Quarter: 2013Q2

REPORT INFORMATION
  Report Type: Spontaneous
  Country: US (occurrence: US)
  Receive Date: 20130530
  Receipt Date: 20130530
  Transmission Date: 20140414
  Serious: No
  Sender: FDA-Public Use
  Company Number: US-NOVEN-13US006447

PATIENT
  Age: 12 Year
  Sex: Male

DRUGS (3)
  1. DAYTRANA [Suspect]
     Indication: ATTENTION DEFICIT/HYPERACTIVITY DISORDER
     Dosage: 10 MG, QD
     Route: 062
     Dates: start: 20130308, end: 20130309
  2. DAYTRANA [Suspect]
     Dosage: 2 X 10 MG, QD
     Route: 062
     Dates: start: 20130309, end: 20130311
  3. DAYTRANA [Suspect]
     Dosage: 1.5 X 10 MG, QD
     Route: 062
     Dates: start: 20130312

REACTIONS (5)
  - Aggression [Recovered/Resolved]
  - Drug ineffective [Not Recovered/Not Resolved]
  - Drug prescribing error [Not Recovered/Not Resolved]
  - Wrong technique in drug usage process [Not Recovered/Not Resolved]
  - Product quality issue [Not Recovered/Not Resolved]
